FAERS Safety Report 5534998-5 (Version None)
Quarter: 2007Q4

REPORT INFORMATION
  Report Type: 
  Country: None (occurrence: None)
  Receive Date: 20071203
  Receipt Date: 20071121
  Transmission Date: 20080405
  Serious: Yes (Hospitalization, Other)
  Sender: FDA-Public Use
  Company Number: CLOF-10784

PATIENT
  Age: 60 Year
  Sex: Male
  Weight: 107.7 kg

DRUGS (2)
  1. CLOFARABINE. MFR: GENZYME [Suspect]
     Indication: MYELOID LEUKAEMIA
     Dosage: 90 MG DAILY IV
     Route: 042
     Dates: start: 20071106, end: 20071110
  2. CYTARABINE [Suspect]
     Indication: MYELOID LEUKAEMIA
     Dosage: 4560 MG DAILY IV
     Route: 042
     Dates: start: 20071106, end: 20071110

REACTIONS (10)
  - ANAPHYLACTIC REACTION [None]
  - DERMATITIS BULLOUS [None]
  - DIALYSIS [None]
  - FEBRILE NEUTROPENIA [None]
  - GASTROINTESTINAL HAEMORRHAGE [None]
  - MENTAL STATUS CHANGES [None]
  - PAIN [None]
  - RASH ERYTHEMATOUS [None]
  - RENAL FAILURE ACUTE [None]
  - SKIN TOXICITY [None]
